FAERS Safety Report 10231016 (Version 1)
Quarter: 2014Q2

REPORT INFORMATION
  Report Type: Spontaneous
  Country: DE (occurrence: GB)
  Receive Date: 20140611
  Receipt Date: 20140611
  Transmission Date: 20141212
  Serious: Yes (Other)
  Sender: FDA-Public Use
  Company Number: GB-FRI-1000067969

PATIENT
  Age: 72 Year
  Sex: Female

DRUGS (3)
  1. MEMANTINE ORAL SOLUTION [Suspect]
     Dosage: 20 MG
     Route: 048
  2. MEMANTINE ORAL SOLUTION [Suspect]
     Dosage: OVERDOSE: 100 MG
  3. MEMANTINE ORAL SOLUTION [Suspect]
     Dosage: 10 MG
     Route: 048

REACTIONS (5)
  - Gait disturbance [Recovered/Resolved]
  - Malaise [Recovered/Resolved]
  - Decreased appetite [Recovered/Resolved]
  - Accidental overdose [Recovered/Resolved]
  - Drug dispensing error [Recovered/Resolved]
